FAERS Safety Report 18055862 (Version 1)
Quarter: 2020Q3

REPORT INFORMATION
  Report Type: Spontaneous
  Country: NL (occurrence: NL)
  Receive Date: 20200722
  Receipt Date: 20200722
  Transmission Date: 20201103
  Serious: Yes (Other)
  Sender: FDA-Public Use
  Company Number: ALC2020NL005635

PATIENT

DRUGS (6)
  1. FENYLEFRIN HYDROCHLORIDE [Suspect]
     Active Substance: PHENYLEPHRINE HYDROCHLORIDE
     Indication: OPHTHALMOLOGICAL EXAMINATION
     Dosage: 1 DRUPPEL
     Route: 065
     Dates: start: 20200630
  2. COLECALCIFEROL [Concomitant]
     Active Substance: CHOLECALCIFEROL
     Indication: PRODUCT USED FOR UNKNOWN INDICATION
     Dosage: DRANK, 5000 IE/ML (EENHEDEN PER MILLILITER)
     Route: 065
  3. TROPICAMIDE. [Suspect]
     Active Substance: TROPICAMIDE
     Indication: OPHTHALMOLOGICAL EXAMINATION
     Dosage: 1 DRUPPEL
     Route: 065
     Dates: start: 20200630
  4. FERROFUMARAAT [Concomitant]
     Indication: PRODUCT USED FOR UNKNOWN INDICATION
     Dosage: SUSPENSIE, 20 MG/ML (MILLIGRAM PER MILLILITER)
     Route: 065
  5. COFFEINE [Concomitant]
     Indication: PRODUCT USED FOR UNKNOWN INDICATION
     Dosage: DRANK, 10 MG/ML (MILLIGRAM PER MILLILITER)
     Route: 065
  6. FYTOMENADION [Concomitant]
     Indication: PRODUCT USED FOR UNKNOWN INDICATION
     Dosage: 30 MCG/DRUPPEL
     Route: 065

REACTIONS (1)
  - Bradycardia neonatal [Recovered/Resolved]
